FAERS Safety Report 17567060 (Version 3)
Quarter: 2020Q2

REPORT INFORMATION
  Report Type: Report from Study
  Country: None (occurrence: TR)
  Receive Date: 20200320
  Receipt Date: 20200417
  Transmission Date: 20200713
  Serious: Yes (Hospitalization, Other)
  Sender: FDA-Public Use
  Company Number: TR-ABBVIE-20K-161-3328873-00

PATIENT
  Sex: Female
  Weight: 72 kg

DRUGS (5)
  1. DILTIZEM [Concomitant]
     Indication: CARDIAC MURMUR
     Route: 048
     Dates: start: 2019
  2. LEPONEX [Concomitant]
     Active Substance: CLOZAPINE
     Indication: PARKINSON^S DISEASE
     Route: 048
     Dates: start: 2018
  3. ALDACTONE [Concomitant]
     Active Substance: SPIRONOLACTONE
     Indication: HYPERTENSION
     Route: 048
     Dates: start: 2019
  4. MADOPAR HBS [Concomitant]
     Active Substance: BENSERAZIDE HYDROCHLORIDE\LEVODOPA
     Indication: PARKINSON^S DISEASE
     Route: 048
     Dates: start: 2018
  5. DUODOPA [Suspect]
     Active Substance: CARBIDOPA\LEVODOPA
     Indication: PARKINSON^S DISEASE
     Dosage: MORNING DOSE (ML): 6.30 CONTINUOUS DOSE (ML): 6.40 EXTRA DOSE (ML): 1.00
     Route: 050
     Dates: start: 20181017

REACTIONS (1)
  - Dementia [Recovered/Resolved]
